FAERS Safety Report 18530285 (Version 1)
Quarter: 2020Q4

REPORT INFORMATION
  Report Type: Spontaneous
  Country: NL (occurrence: NL)
  Receive Date: 20201120
  Receipt Date: 20201120
  Transmission Date: 20210114
  Serious: Yes (Other)
  Sender: FDA-Public Use
  Company Number: NL-AUROBINDO-AUR-APL-2020-056764

PATIENT
  Sex: Male

DRUGS (1)
  1. TRAMADOL 50 MG CAPSULES [Suspect]
     Active Substance: TRAMADOL
     Indication: BACK PAIN
     Dosage: 50 MILLIGRAM (1-3D1C)
     Route: 065
     Dates: start: 20200910, end: 20201012

REACTIONS (1)
  - Homicidal ideation [Recovered/Resolved]
